FAERS Safety Report 7127718-4 (Version None)
Quarter: 2010Q4

REPORT INFORMATION
  Report Type: 
  Country: None (occurrence: None)
  Receive Date: 20101130
  Receipt Date: 20101116
  Transmission Date: 20110411
  Serious: No
  Sender: FDA-Public Use
  Company Number: US-BIOGENIDEC-2010BI038114

PATIENT
  Age: 54 Year
  Sex: Female

DRUGS (1)
  1. TYSABRI [Suspect]
     Indication: MULTIPLE SCLEROSIS
     Route: 042
     Dates: start: 20101026

REACTIONS (5)
  - FATIGUE [None]
  - MEDICAL DEVICE SITE REACTION [None]
  - PRURITUS [None]
  - SENSORY DISTURBANCE [None]
  - URTICARIA [None]
